FAERS Safety Report 23552639 (Version 1)
Quarter: 2024Q1

REPORT INFORMATION
  Report Type: Report from Study
  Country: US (occurrence: None)
  Receive Date: 20240222
  Receipt Date: 20240222
  Transmission Date: 20240410
  Serious: Yes (Other)
  Sender: FDA-Public Use
  Company Number: 2024A039858

PATIENT
  Sex: Female
  Weight: 58.1 kg

DRUGS (1)
  1. TAGRISSO [Suspect]
     Active Substance: OSIMERTINIB
     Indication: Lung neoplasm malignant
     Route: 048
     Dates: start: 20240108

REACTIONS (6)
  - Mesenteric panniculitis [Unknown]
  - Ovarian cyst [Unknown]
  - Nodule [Unknown]
  - Head discomfort [Unknown]
  - Eye pain [Unknown]
  - Visual impairment [Unknown]
